FAERS Safety Report 20181221 (Version 2)
Quarter: 2022Q1

REPORT INFORMATION
  Report Type: Spontaneous
  Country: US (occurrence: None)
  Receive Date: 20211214
  Receipt Date: 20220110
  Transmission Date: 20220423
  Serious: No
  Sender: FDA-Public Use
  Company Number: 2021A808760

PATIENT
  Age: 84 Year
  Sex: Male
  Weight: 108.9 kg

DRUGS (2)
  1. BYDUREON BCISE [Suspect]
     Active Substance: EXENATIDE
     Indication: Type 2 diabetes mellitus
     Route: 058
     Dates: start: 202102
  2. BYDUREON [Suspect]
     Active Substance: EXENATIDE
     Indication: Type 2 diabetes mellitus
     Route: 058
     Dates: end: 202102

REACTIONS (8)
  - Fistula [Not Recovered/Not Resolved]
  - Vascular injury [Unknown]
  - Injection site haemorrhage [Unknown]
  - Wrong technique in product usage process [Unknown]
  - Incorrect dose administered by device [Unknown]
  - Poor quality device used [Unknown]
  - Drug delivery system issue [Unknown]
  - Device leakage [Unknown]

NARRATIVE: CASE EVENT DATE: 20210101
